FAERS Safety Report 8067971-6 (Version None)
Quarter: 2012Q1

REPORT INFORMATION
  Report Type: 
  Country: None (occurrence: None)
  Receive Date: 20120124
  Receipt Date: 20110907
  Transmission Date: 20120608
  Serious: No
  Sender: FDA-Public Use
  Company Number: US-AMGEN-USASP2011045683

PATIENT
  Age: 78 Year
  Sex: Female

DRUGS (8)
  1. ZETIA [Concomitant]
  2. VITAMIN B-12 [Concomitant]
  3. CALCIUM CARBONATE [Concomitant]
  4. PROLIA [Suspect]
     Indication: OSTEOPOROSIS POSTMENOPAUSAL
     Dosage: 60 MG, Q6MO
     Dates: start: 20110824
  5. WELCHOL [Concomitant]
  6. FISH OIL [Concomitant]
  7. PREVACID [Concomitant]
  8. PLAVIX [Concomitant]

REACTIONS (1)
  - PAIN [None]
